FAERS Safety Report 7501482-9 (Version None)
Quarter: 2011Q2

REPORT INFORMATION
  Report Type: 
  Country: None (occurrence: None)
  Receive Date: 20110524
  Receipt Date: 20090216
  Transmission Date: 20111010
  Serious: Yes (Death, Hospitalization, Other)
  Sender: FDA-Public Use
  Company Number: US-BAYER-200913079NA

PATIENT
  Age: 73 Year
  Sex: Male
  Weight: 98 kg

DRUGS (33)
  1. HYDROCHLOROTHIAZIDE [Concomitant]
     Dosage: 25 MG, QD (LONG TERM)
     Route: 048
  2. HEPARIN [Concomitant]
     Dosage: 10000 U, UNK
     Route: 042
     Dates: start: 20030327, end: 20030327
  3. NITROGLYCERIN [Concomitant]
     Dosage: 2 SPRAYS
     Route: 048
     Dates: start: 20030327, end: 20030327
  4. SODIUM BICARBONATE [Concomitant]
     Dosage: 50 MEQ, UNK
     Route: 042
     Dates: start: 20030327, end: 20030327
  5. LOPID [Concomitant]
     Dosage: 600 MG, BID (LONG TERM)
     Route: 048
  6. NITROGLYCERIN [Concomitant]
  7. LIDOCAINE [Concomitant]
     Dosage: UNK, INJECTION
     Dates: start: 20030327, end: 20030327
  8. VISIPAQUE [Concomitant]
     Dosage: 310 ML, UNK
     Route: 042
     Dates: start: 20030327, end: 20030327
  9. SOLU-MEDROL [Concomitant]
     Dosage: 1 G, UNK
     Route: 042
     Dates: start: 20030327, end: 20030327
  10. NORCURON [Concomitant]
     Dosage: 15 UNK
     Route: 042
     Dates: start: 20030327, end: 20030327
  11. ALBUMIN (HUMAN) [Concomitant]
     Dosage: 50 ML, UNK
     Route: 042
     Dates: start: 20030327, end: 20030327
  12. ZOCOR [Concomitant]
     Dosage: 20 MG, QD (LONG TERM)
     Route: 048
  13. HEPARIN [Concomitant]
     Dosage: 7000 U, UNK
     Route: 042
     Dates: start: 20030327, end: 20030327
  14. MORPHINE [Concomitant]
     Dosage: 4 MG, UNK
     Route: 042
     Dates: start: 20030327, end: 20030327
  15. DIPRIVAN [Concomitant]
     Dosage: 30 MCG
     Route: 042
     Dates: start: 20030327
  16. TRASYLOL [Suspect]
     Dosage: 2 MILLION KIU (PRIME)
     Route: 042
     Dates: start: 20030327, end: 20030327
  17. TRASYLOL [Suspect]
  18. NITROGLYCERIN [Concomitant]
     Dosage: UNK
     Route: 042
     Dates: start: 20030327
  19. VERSED [Concomitant]
     Dosage: 20 MG, UNK
     Route: 042
     Dates: start: 20030327, end: 20030327
  20. TRIDIL [Concomitant]
     Dosage: 3 MCG
     Route: 042
     Dates: start: 20030327, end: 20030327
  21. DOBUTAMINE HYDROCHLORIDE [Concomitant]
     Dosage: 2.5-5 MCG
     Route: 042
     Dates: start: 20030327, end: 20030327
  22. PLASMALYTE [GLUCOSE,POTASSIUM CHLORIDE] [Concomitant]
     Dosage: 1500 ML, UNK
     Route: 042
     Dates: start: 20030327, end: 20030327
  23. MANNITOL [Concomitant]
     Dosage: 17.5 G, UNK
     Route: 042
     Dates: start: 20030327, end: 20030327
  24. TRASYLOL [Suspect]
     Indication: CORONARY ARTERY BYPASS
     Dosage: 1 ML, ONCE (INITIAL)
     Route: 042
     Dates: start: 20030327, end: 20030327
  25. LOPRESSOR [Concomitant]
     Dosage: 50 MG, BID (LONG TERM)
     Route: 048
  26. PHENYLEPHRINE HCL [Concomitant]
     Dosage: 250 MG, UNK
     Route: 042
     Dates: start: 20030327, end: 20030327
  27. MAGNESIUM [Concomitant]
     Dosage: 2 G, UNK
     Route: 042
     Dates: start: 20030327, end: 20030327
  28. CALCIUM CHLORIDE [Concomitant]
     Dosage: 1 G, UNK
     Route: 042
     Dates: start: 20030327, end: 20030327
  29. TRIAMTERENE [Concomitant]
     Dosage: 37.5 MG, QD (LONG TERM)
     Route: 048
  30. DOPAMINE HCL [Concomitant]
     Dosage: UNK
     Route: 042
     Dates: start: 20030327
  31. ACETYLSALICYLIC ACID SRT [Concomitant]
     Dosage: 325 MG, UNK (LONG TERM)
     Route: 048
  32. PROTAMINE SULFATE [Concomitant]
     Dosage: 510 MG, UNK
     Route: 042
     Dates: start: 20030327, end: 20030327
  33. CEFAZOLIN [Concomitant]
     Dosage: 2 UNK
     Route: 042
     Dates: start: 20030327, end: 20030327

REACTIONS (12)
  - MULTI-ORGAN FAILURE [None]
  - ANXIETY [None]
  - DEPRESSION [None]
  - DEATH [None]
  - INJURY [None]
  - PAIN [None]
  - RENAL FAILURE [None]
  - RENAL IMPAIRMENT [None]
  - FEAR [None]
  - ANHEDONIA [None]
  - STRESS [None]
  - UNEVALUABLE EVENT [None]
